FAERS Safety Report 6011269-4 (Version None)
Quarter: 2008Q4

REPORT INFORMATION
  Report Type: 
  Country: None (occurrence: None)
  Receive Date: 20081218
  Receipt Date: 20081210
  Transmission Date: 20090506
  Serious: Yes (Hospitalization)
  Sender: FDA-Public Use
  Company Number: PHHY2008GB31464

PATIENT
  Age: 21 Year
  Sex: Female

DRUGS (5)
  1. CLOZAPINE [Suspect]
     Indication: BIPOLAR DISORDER
     Dosage: 175 MG, BID
     Route: 048
     Dates: start: 20080221, end: 20080308
  2. CLONAZEPAM [Concomitant]
     Indication: SCHIZOPHRENIA
     Dosage: 2 MG DAILY
     Route: 048
  3. DULOXETINE [Concomitant]
     Indication: SCHIZOPHRENIA
     Dosage: 5 MG DAILY
     Route: 048
  4. LITHIUM [Concomitant]
     Indication: SCHIZOPHRENIA
     Dosage: 400 MG DAILY
     Route: 048
  5. VALPROATE SODIUM [Concomitant]
     Indication: SCHIZOPHRENIA
     Dosage: 1000 MG, BID
     Route: 048

REACTIONS (2)
  - MYOCARDITIS [None]
  - VIRAL MYOCARDITIS [None]
